FAERS Safety Report 4536608-2 (Version None)
Quarter: 2004Q4

REPORT INFORMATION
  Report Type: 
  Country: None (occurrence: None)
  Receive Date: 20041223
  Receipt Date: 20041216
  Transmission Date: 20050328
  Serious: Yes (Other)
  Sender: FDA-Public Use
  Company Number: DE-BRISTOL-MYERS SQUIBB COMPANY-12799342

PATIENT
  Age: 71 Year
  Sex: Male

DRUGS (2)
  1. CETUXIMAB [Suspect]
     Indication: COLORECTAL CANCER
     Dosage: 16TH INFUSION SO FAR.  ON 07-SEP-04, THERAPY DISCONTINUED.
     Route: 041
     Dates: start: 20040505, end: 20040818
  2. IRINOTECAN [Suspect]
     Indication: COLORECTAL CANCER
     Dosage: 8TH INFUSION SO FAR.  ON 07-SEP-04, THERAPY DISCONTINUED.
     Route: 042
     Dates: start: 20040505, end: 20040811

REACTIONS (3)
  - FEMUR FRACTURE [None]
  - SKIN NECROSIS [None]
  - VASCULITIS [None]
